FAERS Safety Report 4624136-5 (Version None)
Quarter: 2005Q1

REPORT INFORMATION
  Report Type: 
  Country: None (occurrence: None)
  Receive Date: 20050331
  Receipt Date: 20041206
  Transmission Date: 20050727
  Serious: Yes (Other)
  Sender: FDA-Public Use
  Company Number: US-GLAXOSMITHKLINE-A0536177A

PATIENT
  Age: 48 Year
  Sex: Female
  Weight: 61.4 kg

DRUGS (4)
  1. PAXIL [Suspect]
     Indication: DRUG USE FOR UNKNOWN INDICATION
     Dosage: 20MG UNKNOWN
     Route: 048
     Dates: start: 19940601, end: 19940922
  2. ANTIBIOTIC [Concomitant]
     Indication: DRUG USE FOR UNKNOWN INDICATION
     Route: 065
  3. DIFLUCAN [Concomitant]
     Indication: DRUG USE FOR UNKNOWN INDICATION
     Route: 065
  4. UNSPECIFIED MEDICATION [Concomitant]

REACTIONS (13)
  - ADVERSE EVENT [None]
  - ANXIETY [None]
  - DRUG TOXICITY [None]
  - DRUG WITHDRAWAL SYNDROME [None]
  - FEAR [None]
  - FOOD POISONING [None]
  - HEPATIC ENZYME INCREASED [None]
  - HYPERACUSIS [None]
  - IMPAIRED HEALING [None]
  - MALAISE [None]
  - MULTIPLE CHEMICAL SENSITIVITY [None]
  - NERVE INJURY [None]
  - NERVOUSNESS [None]
